FAERS Safety Report 16272376 (Version 1)
Quarter: 2019Q2

REPORT INFORMATION
  Report Type: Spontaneous
  Country: FR (occurrence: FR)
  Receive Date: 20190506
  Receipt Date: 20190506
  Transmission Date: 20190711
  Serious: Yes (Death, Other)
  Sender: FDA-Public Use
  Company Number: FR-TEVA-2019-FR-1046065

PATIENT
  Age: 62 Year
  Sex: Male
  Weight: 62 kg

DRUGS (11)
  1. DEXAMETHASONE. [Suspect]
     Active Substance: DEXAMETHASONE
     Indication: MENINGITIS
     Route: 042
     Dates: start: 20190303, end: 20190308
  2. SOLU-MEDROL [Suspect]
     Active Substance: METHYLPREDNISOLONE SODIUM SUCCINATE
     Indication: BACTERIAL INFECTION
     Dosage: VARIABLE
     Route: 042
     Dates: start: 20190308, end: 20190402
  3. TAMIFLU [Concomitant]
     Active Substance: OSELTAMIVIR PHOSPHATE
     Indication: INFLUENZA
     Route: 048
     Dates: start: 20190304, end: 20190305
  4. KEPPRA [Suspect]
     Active Substance: LEVETIRACETAM
     Indication: SEIZURE PROPHYLAXIS
     Dosage: VARIABLE
     Route: 042
     Dates: start: 20190305, end: 20190401
  5. AMOXICILLINE [Suspect]
     Active Substance: AMOXICILLIN
     Indication: MENINGITIS
     Route: 042
     Dates: start: 20190307, end: 20190316
  6. ROCEPHINE [Suspect]
     Active Substance: CEFTRIAXONE SODIUM
     Indication: MENINGITIS
     Route: 042
     Dates: start: 20190302, end: 20190302
  7. MIDAZOLAM [Concomitant]
     Active Substance: MIDAZOLAM HYDROCHLORIDE
     Indication: ANAESTHESIA
     Dosage: VARIABLE
     Route: 042
     Dates: start: 20190303, end: 20190311
  8. LOVENOX [Concomitant]
     Active Substance: ENOXAPARIN SODIUM
     Indication: PROPHYLAXIS
     Dosage: AMPOULE
     Route: 058
     Dates: start: 20190304, end: 20190401
  9. FENTANYL. [Concomitant]
     Active Substance: FENTANYL
     Indication: ANAESTHESIA
     Dosage: VARIABLE
     Route: 042
     Dates: start: 20190303, end: 20190311
  10. KARDEGIC [Concomitant]
     Active Substance: ASPIRIN DL-LYSINE
     Indication: PROPHYLAXIS
     Dosage: SACHET DOSE
     Route: 048
     Dates: start: 20190314, end: 20190401
  11. CEFOTAXIME BASE [Suspect]
     Active Substance: CEFOTAXIME SODIUM
     Indication: MENINGITIS
     Dosage: VARIABLE
     Route: 042
     Dates: start: 20190303, end: 20190307

REACTIONS (1)
  - Hepatocellular injury [Recovering/Resolving]

NARRATIVE: CASE EVENT DATE: 20190308
